FAERS Safety Report 8850884 (Version 2)
Quarter: 2012Q4

REPORT INFORMATION
  Report Type: 
  Country: US (occurrence: US)
  Receive Date: 20121019
  Receipt Date: 20121128
  Transmission Date: 20130627
  Serious: No
  Sender: FDA-Public Use
  Company Number: US-PFIZER INC-2012259844

PATIENT
  Age: 61 Year
  Sex: Female

DRUGS (4)
  1. GABAPENTIN [Suspect]
     Indication: FIBROMYALGIA
     Dosage: 100 mg, 2x/day
     Route: 048
     Dates: start: 200910
  2. GABAPENTIN [Suspect]
     Indication: NEUROPATHY
  3. HYDROCHLOROTHIAZIDE [Concomitant]
     Dosage: 25 mg, UNK
  4. PRAVASTATIN [Concomitant]
     Dosage: 40 mg, UNK

REACTIONS (3)
  - Off label use [Unknown]
  - Lip pruritus [Not Recovered/Not Resolved]
  - Lip blister [Not Recovered/Not Resolved]
